FAERS Safety Report 12912349 (Version 1)
Quarter: 2016Q4

REPORT INFORMATION
  Report Type: Spontaneous
  Country: GB (occurrence: GB)
  Receive Date: 20161104
  Receipt Date: 20161104
  Transmission Date: 20170207
  Serious: Yes (Other)
  Sender: FDA-Public Use
  Company Number: GB-009507513-1611GBR000534

PATIENT
  Sex: Female

DRUGS (1)
  1. MONTELUKAST SODIUM. [Suspect]
     Active Substance: MONTELUKAST SODIUM
     Dosage: 10 MG, UNK
     Route: 065

REACTIONS (3)
  - Drug ineffective [Unknown]
  - Asthma [Unknown]
  - Peak expiratory flow rate abnormal [Unknown]
